FAERS Safety Report 6740972-3 (Version None)
Quarter: 2010Q2

REPORT INFORMATION
  Report Type: 
  Country: None (occurrence: None)
  Receive Date: 20100526
  Receipt Date: 20100517
  Transmission Date: 20101027
  Serious: No
  Sender: FDA-Public Use
  Company Number: US-BIOGENIDEC-2010BI016193

PATIENT
  Age: 51 Year
  Sex: Female

DRUGS (2)
  1. AVONEX [Suspect]
     Indication: MULTIPLE SCLEROSIS
     Route: 030
     Dates: start: 20091226
  2. AVONEX [Suspect]
     Route: 030
     Dates: start: 20100101

REACTIONS (5)
  - CRYING [None]
  - DEPRESSION [None]
  - INFLUENZA LIKE ILLNESS [None]
  - PARAESTHESIA [None]
  - PLATELET COUNT DECREASED [None]
